FAERS Safety Report 17047871 (Version 1)
Quarter: 2019Q4

REPORT INFORMATION
  Report Type: Report from Study
  Country: CA (occurrence: CA)
  Receive Date: 20191119
  Receipt Date: 20191119
  Transmission Date: 20200122
  Serious: Yes (Other)
  Sender: FDA-Public Use
  Company Number: CA-JNJFOC-20191112322

PATIENT
  Age: 34 Year
  Sex: Male
  Weight: 75.6 kg

DRUGS (2)
  1. TYLENOL [Concomitant]
     Active Substance: ACETAMINOPHEN
     Indication: HEADACHE
  2. REMICADE [Suspect]
     Active Substance: INFLIXIMAB
     Indication: CROHN^S DISEASE
     Route: 042

REACTIONS (3)
  - Intestinal resection [Unknown]
  - Gastrointestinal obstruction [Recovered/Resolved]
  - Procedural site reaction [Unknown]

NARRATIVE: CASE EVENT DATE: 20190926
